FAERS Safety Report 21866976 (Version 1)
Quarter: 2023Q1

REPORT INFORMATION
  Report Type: Spontaneous
  Country: US (occurrence: US)
  Receive Date: 20230116
  Receipt Date: 20230116
  Transmission Date: 20230417
  Serious: No
  Sender: FDA-Public Use
  Company Number: US-AMGEN-USASP2023002157

PATIENT
  Sex: Female

DRUGS (2)
  1. REPATHA [Suspect]
     Active Substance: EVOLOCUMAB
     Indication: Blood cholesterol increased
     Dosage: 140 MILLIGRAM
     Route: 058
     Dates: start: 20221226
  2. CYCLOBENZAPRINE [Concomitant]
     Active Substance: CYCLOBENZAPRINE
     Indication: Product used for unknown indication
     Route: 065

REACTIONS (8)
  - Herpes virus infection [Unknown]
  - Muscular weakness [Unknown]
  - Joint lock [Unknown]
  - Insomnia [Unknown]
  - Dyspnoea [Unknown]
  - Gastrooesophageal reflux disease [Unknown]
  - Irritability [Unknown]
  - Arthralgia [Unknown]

NARRATIVE: CASE EVENT DATE: 20230101
